FAERS Safety Report 22200675 (Version 1)
Quarter: 2023Q2

REPORT INFORMATION
  Report Type: Spontaneous
  Country: RO (occurrence: RO)
  Receive Date: 20230412
  Receipt Date: 20230412
  Transmission Date: 20230721
  Serious: Yes (Hospitalization, Other)
  Sender: FDA-Public Use
  Company Number: RO-AMGEN-ROUSP2021099763

PATIENT
  Age: 63 Year
  Sex: Female

DRUGS (12)
  1. LENALIDOMIDE [Suspect]
     Active Substance: LENALIDOMIDE
     Indication: Plasma cell myeloma
     Dosage: 25 MILLIGRAM  (DAY1 -DAY21)
     Route: 065
  2. LENALIDOMIDE [Suspect]
     Active Substance: LENALIDOMIDE
     Dosage: 10 MILLIGRAM, ONCE A DAY
     Route: 065
     Dates: start: 202005
  3. LENALIDOMIDE [Suspect]
     Active Substance: LENALIDOMIDE
     Dosage: 25 MILLIGRAM (DAYS 1-21)
     Route: 065
     Dates: start: 202203
  4. DEXAMETHASONE [Suspect]
     Active Substance: DEXAMETHASONE
     Indication: Plasma cell myeloma
     Dosage: 40 MILLIGRAM, EVERY WEEK
     Route: 065
     Dates: start: 201902, end: 202008
  5. DEXAMETHASONE [Suspect]
     Active Substance: DEXAMETHASONE
     Dosage: 40 MILLIGRAM, ONCE A DAY (40 MILLIGRAM, QD (DAYS 1,8,15,22))
     Route: 065
     Dates: start: 202203
  6. DARATUMUMAB [Suspect]
     Active Substance: DARATUMUMAB
     Indication: Plasma cell myeloma
     Dosage: 1800 MILLIGRAM (1800 MILLIGRAM (DAYS 1,8,15,22))
     Route: 065
     Dates: start: 202203
  7. KYPROLIS [Suspect]
     Active Substance: CARFILZOMIB
     Indication: Plasma cell myeloma
     Dosage: 27 MILLIGRAM(27 MILLIGRAM/ MP)
     Route: 042
     Dates: start: 201902, end: 201908
  8. KYPROLIS [Suspect]
     Active Substance: CARFILZOMIB
     Dosage: 27 MILLIGRAM (27 MILLIGRAM/ MP)
     Route: 042
     Dates: start: 20211231
  9. ELIQUIS [Concomitant]
     Active Substance: APIXABAN
     Indication: Prophylaxis
     Dosage: 2.5 MILLIGRAM (2,5 MG X 2/DAY)
     Route: 065
  10. ZOLEDRONIC ACID [Concomitant]
     Active Substance: ZOLEDRONIC ACID
     Indication: Product used for unknown indication
     Dosage: UNK
     Route: 065
  11. SULFAMETHOXAZOLE\TRIMETHOPRIM [Concomitant]
     Active Substance: SULFAMETHOXAZOLE\TRIMETHOPRIM
     Indication: Prophylaxis
     Dosage: 400/80 MG 2 CP/DAY X 3/WEEK
     Route: 065
  12. ACYCLOVIR [Concomitant]
     Active Substance: ACYCLOVIR
     Indication: Prophylaxis
     Dosage: 800 MILLIGRAM, ONCE A DAY (400 MILLIGRAM, BID)
     Route: 065

REACTIONS (12)
  - Erysipelas [Unknown]
  - Chronic obstructive pulmonary disease [Unknown]
  - Plasma cell myeloma recurrent [Unknown]
  - Pancytopenia [Unknown]
  - Weight decreased [Unknown]
  - Asthenia [Unknown]
  - Rash maculo-papular [Unknown]
  - Bone pain [Unknown]
  - Pyrexia [Unknown]
  - Decreased appetite [Unknown]
  - Chills [Unknown]
  - Respiratory disorder [Unknown]

NARRATIVE: CASE EVENT DATE: 20190801
